FAERS Safety Report 8026162-5 (Version None)
Quarter: 2012Q1

REPORT INFORMATION
  Report Type: 
  Country: None (occurrence: None)
  Receive Date: 20120105
  Receipt Date: 20110716
  Transmission Date: 20120608
  Serious: No
  Sender: FDA-Public Use
  Company Number: US-ABBOTT-11P-163-0840101-00

PATIENT
  Age: 55 Year
  Sex: Female
  Weight: 65.83 kg

DRUGS (3)
  1. SYNTHROID [Suspect]
     Indication: HYPOTHYROIDISM
     Dates: start: 20070101, end: 20100101
  2. SYNTHROID [Suspect]
     Dates: start: 20100101
  3. SYNTHROID [Suspect]
     Dates: start: 20100101

REACTIONS (3)
  - INSOMNIA [None]
  - BONE DENSITY DECREASED [None]
  - HEART RATE IRREGULAR [None]
